FAERS Safety Report 16664493 (Version 9)
Quarter: 2024Q4

REPORT INFORMATION
  Report Type: Spontaneous
  Country: BE (occurrence: BE)
  Receive Date: 20190802
  Receipt Date: 20241203
  Transmission Date: 20250115
  Serious: Yes (Life-Threatening, Hospitalization, Other)
  Sender: NOVARTIS
  Company Number: PHHY2019BE168520

PATIENT
  Age: 43 Year
  Sex: Female

DRUGS (29)
  1. BASILIXIMAB [Suspect]
     Active Substance: BASILIXIMAB
     Indication: Renal transplant
     Dosage: UNK (INDUCTON)
     Route: 065
  2. BASILIXIMAB [Suspect]
     Active Substance: BASILIXIMAB
     Indication: Immunosuppressant drug therapy
  3. GANCICLOVIR [Suspect]
     Active Substance: GANCICLOVIR
     Indication: Cytomegalovirus infection
     Dosage: 5 MG/KG (2 X 2.5 MG/KG), QD (FROM DAY 86 TO DAY 94)
     Route: 065
  4. GANCICLOVIR [Suspect]
     Active Substance: GANCICLOVIR
     Dosage: UNK (GANCICLOVIR IN COMBINATION WITH FOSCARNET AND CMV IG WERE RESTARTED)
     Route: 065
  5. TACROLIMUS [Suspect]
     Active Substance: TACROLIMUS
     Indication: Renal transplant
     Dosage: UNK
     Route: 065
  6. TACROLIMUS [Suspect]
     Active Substance: TACROLIMUS
     Indication: Immunosuppressant drug therapy
     Dosage: UNK
     Route: 065
  7. MYCOPHENOLATE MOFETIL [Suspect]
     Active Substance: MYCOPHENOLATE MOFETIL
     Indication: Renal transplant
     Dosage: 2X500 MG/DAY, DECREASED
     Route: 065
  8. MYCOPHENOLATE MOFETIL [Suspect]
     Active Substance: MYCOPHENOLATE MOFETIL
     Indication: Immunosuppressant drug therapy
     Dosage: 2?500 MG/DAY, DECREASED
     Route: 065
  9. MYCOPHENOLATE MOFETIL [Suspect]
     Active Substance: MYCOPHENOLATE MOFETIL
     Indication: Nephropathy
     Dosage: 5 MG/KG
     Route: 065
  10. MYCOPHENOLATE MOFETIL [Suspect]
     Active Substance: MYCOPHENOLATE MOFETIL
     Dosage: 2.5 MG/KG
     Route: 065
  11. MYCOPHENOLATE MOFETIL [Suspect]
     Active Substance: MYCOPHENOLATE MOFETIL
     Dosage: 1 MG/KG
     Route: 065
  12. VALGANCICLOVIR [Suspect]
     Active Substance: VALGANCICLOVIR
     Indication: Antiviral prophylaxis
     Dosage: 450 MG, QD AUGMENTED TO 2 X 450 MG/D (DAY 43 POST-TRANSPLANTATION)
     Route: 065
  13. METHYLPREDNISOLONE [Suspect]
     Active Substance: METHYLPREDNISOLONE
     Indication: Immunosuppressant drug therapy
     Dosage: LOW-DOSE METHYLPREDNISOLONE
     Route: 065
  14. METHYLPREDNISOLONE [Suspect]
     Active Substance: METHYLPREDNISOLONE
     Dosage: LOW-DOSE METHYLPREDNISOLONE
     Route: 065
  15. METHYLPREDNISOLONE [Suspect]
     Active Substance: METHYLPREDNISOLONE
     Dosage: LOW-DOSE METHYLPREDNISOLONE
     Route: 065
  16. FOSCARNET SODIUM [Suspect]
     Active Substance: FOSCARNET SODIUM
     Indication: Cytomegalovirus infection
     Dosage: UNK (GANCICLOVIR IN COMBINATION WITH FOSCARNET AND CMV IG WERE RESTARTED)
     Route: 065
  17. FOSCARNET SODIUM [Suspect]
     Active Substance: FOSCARNET SODIUM
     Dosage: 5600 MG, QD (2 X2800 MG/DAY;STOPPED AT DAY 101; THIS DOSE WAS LOWERED AFTER 6 DAYS TREATMENT)
     Route: 065
  18. CIDOFOVIR [Suspect]
     Active Substance: CIDOFOVIR
     Indication: Nephropathy
     Dosage: 2.5 MG/KG
     Route: 065
  19. CIDOFOVIR [Suspect]
     Active Substance: CIDOFOVIR
     Dosage: 1 MG/KG
     Route: 065
  20. CIDOFOVIR [Suspect]
     Active Substance: CIDOFOVIR
     Dosage: 5 MG/KG, QW
     Route: 065
  21. CIDOFOVIR [Suspect]
     Active Substance: CIDOFOVIR
     Route: 065
  22. CIDOFOVIR [Suspect]
     Active Substance: CIDOFOVIR
     Route: 065
  23. CIDOFOVIR [Suspect]
     Active Substance: CIDOFOVIR
     Route: 065
  24. CIDOFOVIR [Suspect]
     Active Substance: CIDOFOVIR
     Route: 065
  25. CIDOFOVIR [Suspect]
     Active Substance: CIDOFOVIR
     Route: 065
  26. CIDOFOVIR [Suspect]
     Active Substance: CIDOFOVIR
     Route: 065
  27. IVEGAM CMV [Concomitant]
     Active Substance: HUMAN CYTOMEGALOVIRUS IMMUNE GLOBULIN
     Indication: Product used for unknown indication
     Dosage: 1 G, UNK
     Route: 065
  28. IVEGAM CMV [Concomitant]
     Active Substance: HUMAN CYTOMEGALOVIRUS IMMUNE GLOBULIN
     Dosage: UNK (GANCICLOVIR IN COMBINATION WITH FOSCARNET AND CMV IG WERE RESTARTED)
     Route: 065
  29. VALGANCICLOVIR [Concomitant]
     Active Substance: VALGANCICLOVIR
     Indication: Antiviral prophylaxis
     Dosage: 450 MG, QD
     Route: 065

REACTIONS (12)
  - Cytomegalovirus infection [Recovered/Resolved]
  - Nephropathy [Recovered/Resolved]
  - Thrombocytopenia [Recovered/Resolved]
  - Hepatic function abnormal [Recovering/Resolving]
  - Gastrointestinal disorder [Unknown]
  - Viral uveitis [Recovered/Resolved]
  - Transplant rejection [Recovered/Resolved]
  - Renal impairment [Recovering/Resolving]
  - C-reactive protein increased [Unknown]
  - Drug resistance [Unknown]
  - Asthenia [Unknown]
  - Diarrhoea [Recovered/Resolved]
